FAERS Safety Report 8862124 (Version 1)
Quarter: 2012Q4

REPORT INFORMATION
  Report Type: Report from Study
  Country: DE (occurrence: DE)
  Receive Date: 20121026
  Receipt Date: 20121026
  Transmission Date: 20130627
  Serious: Yes (Hospitalization)
  Sender: FDA-Public Use
  Company Number: DE-ABBOTT-12P-062-0998050-00

PATIENT
  Age: 28 Year
  Sex: Female
  Weight: 65 kg

DRUGS (2)
  1. HUMIRA [Suspect]
     Indication: PSORIATIC ARTHROPATHY
     Dosage: every 2-3 weeks
     Dates: start: 201203
  2. CELEBREX [Concomitant]
     Indication: PSORIATIC ARTHROPATHY
     Dosage: 400 mg daily
     Dates: start: 201112

REACTIONS (3)
  - Bone fistula [Recovered/Resolved]
  - Appendicectomy [Recovered/Resolved]
  - Ovarian cyst ruptured [Recovered/Resolved]
